FAERS Safety Report 7656448-5 (Version None)
Quarter: 2011Q3

REPORT INFORMATION
  Report Type: 
  Country: None (occurrence: None)
  Receive Date: 20110804
  Receipt Date: 20110722
  Transmission Date: 20111222
  Serious: Yes (Hospitalization)
  Sender: FDA-Public Use
  Company Number: US-SANOFI-AVENTIS-2011SA048414

PATIENT
  Age: 71 Year
  Sex: Male
  Weight: 84 kg

DRUGS (7)
  1. DRONEDARONE HCL [Suspect]
     Indication: ATRIAL FIBRILLATION
     Route: 048
     Dates: start: 20100907, end: 20110721
  2. FUROSEMIDE [Concomitant]
  3. VALSARTAN [Concomitant]
  4. ATORVASTATIN [Concomitant]
  5. CARVEDIOL [Concomitant]
  6. ASPIRIN [Concomitant]
  7. WARFARIN SODIUM [Concomitant]
     Dosage: 40 MG WEEKLY

REACTIONS (1)
  - CARDIAC PACEMAKER INSERTION [None]
